FAERS Safety Report 4784930-7 (Version None)
Quarter: 2005Q3

REPORT INFORMATION
  Report Type: 
  Country: None (occurrence: None)
  Receive Date: 20050928
  Receipt Date: 20050913
  Transmission Date: 20060218
  Serious: Yes (Life-Threatening, Other)
  Sender: FDA-Public Use
  Company Number: USA0508105961

PATIENT
  Age: 46 Year
  Sex: Female
  Weight: 95 kg

DRUGS (7)
  1. CYMBALTA [Suspect]
     Dosage: 30 MG DAY
     Route: 048
  2. COUMADIN [Concomitant]
  3. LIPITOR [Concomitant]
  4. TOPAMAX [Concomitant]
  5. LAMOTRIGINE [Concomitant]
  6. CLONAZEPAM [Concomitant]
  7. ALBUTEROL [Concomitant]

REACTIONS (10)
  - COAGULATION FACTOR VII LEVEL DECREASED [None]
  - COAGULATION FACTOR X LEVEL DECREASED [None]
  - CONTUSION [None]
  - DRUG INTERACTION POTENTIATION [None]
  - GASTROINTESTINAL HAEMORRHAGE [None]
  - INTERNATIONAL NORMALISED RATIO INCREASED [None]
  - PETECHIAE [None]
  - PROTHROMBIN LEVEL DECREASED [None]
  - PROTHROMBIN TIME PROLONGED [None]
  - PURPURA [None]
